FAERS Safety Report 5270891-3 (Version None)
Quarter: 2007Q1

REPORT INFORMATION
  Report Type: 
  Country: None (occurrence: None)
  Receive Date: 20061214
  Receipt Date: 20060912
  Transmission Date: 20070707
  Serious: Yes (Hospitalization, Other)
  Sender: FDA-Public Use
  Company Number: 2005154338

PATIENT
  Age: 40 Year
  Sex: Female
  Weight: 149.687 kg

DRUGS (6)
  1. BEXTRA [Suspect]
     Indication: ARTHRITIS
     Dosage: 20 MG (20 MG, 1 IN 1 D)
     Dates: start: 20030825, end: 20050407
  2. BEXTRA [Suspect]
     Indication: EXOSTOSIS
     Dosage: 20 MG (20 MG, 1 IN 1 D)
     Dates: start: 20030825, end: 20050407
  3. BEXTRA [Suspect]
     Indication: PAIN IN EXTREMITY
     Dosage: 20 MG (20 MG, 1 IN 1 D)
     Dates: start: 20030825, end: 20050407
  4. VERAPAMIL - SLOW RELEASE (VERAPAMIL HYDROCHLORIDE) [Concomitant]
  5. DYAZIDE [Concomitant]
  6. ALLEGRA [Concomitant]

REACTIONS (1)
  - PULMONARY EMBOLISM [None]
